FAERS Safety Report 7940965-4 (Version None)
Quarter: 2011Q4

REPORT INFORMATION
  Report Type: 
  Country: None (occurrence: None)
  Receive Date: 20111128
  Receipt Date: 20111121
  Transmission Date: 20120403
  Serious: Yes (Death, Hospitalization, Other)
  Sender: FDA-Public Use
  Company Number: PHHY2011GB101888

PATIENT
  Age: 18 Year
  Sex: Female
  Weight: 69 kg

DRUGS (8)
  1. ACETAMINOPHEN [Concomitant]
     Dosage: UNK
  2. LAMOTRIGINE [Suspect]
     Indication: MIGRAINE
     Dosage: 25 MG, EVERY ALTERNATE DAY
     Route: 048
  3. MORPHINE [Concomitant]
     Dosage: UNK
  4. PREGABALIN [Concomitant]
     Dosage: UNK
  5. METHYLPREDNISOLONE [Concomitant]
     Indication: ARTHRITIS
     Dosage: 250 MG, UNK
     Route: 042
  6. METHOTREXATE [Concomitant]
     Dosage: UNK
     Dates: start: 20101201
  7. NAPROXEN [Concomitant]
     Dosage: UNK
  8. OMEPRAZOLE [Concomitant]
     Dosage: UNK

REACTIONS (10)
  - DRUG RASH WITH EOSINOPHILIA AND SYSTEMIC SYMPTOMS [None]
  - PYREXIA [None]
  - RASH [None]
  - GENERAL PHYSICAL HEALTH DETERIORATION [None]
  - ARTHRALGIA [None]
  - DISSEMINATED INTRAVASCULAR COAGULATION [None]
  - FALL [None]
  - BALANCE DISORDER [None]
  - MULTI-ORGAN FAILURE [None]
  - BRAIN OEDEMA [None]
